FAERS Safety Report 9845810 (Version 1)
Quarter: 2014Q1

REPORT INFORMATION
  Report Type: Spontaneous
  Country: US (occurrence: US)
  Receive Date: 20140127
  Receipt Date: 20140127
  Transmission Date: 20141002
  Serious: Yes (Other)
  Sender: FDA-Public Use
  Company Number: US-PFIZER INC-2014021516

PATIENT
  Age: 62 Year
  Sex: Male
  Weight: 78.46 kg

DRUGS (5)
  1. VIAGRA [Suspect]
     Indication: ERECTILE DYSFUNCTION
     Dosage: 50 MG, AS NEEDED
     Route: 048
     Dates: end: 201308
  2. PROPAFENONE [Concomitant]
     Dosage: UNK
  3. LOVASTATIN [Concomitant]
     Dosage: UNK
  4. MELOXICAM [Concomitant]
     Dosage: UNK
  5. CHLORTHALIDONE [Concomitant]
     Dosage: UNK

REACTIONS (1)
  - Myocardial infarction [Unknown]
